FAERS Safety Report 7949329-0 (Version None)
Quarter: 2011Q4

REPORT INFORMATION
  Report Type: 
  Country: None (occurrence: None)
  Receive Date: 20111130
  Receipt Date: 20110908
  Transmission Date: 20120403
  Serious: Yes (Hospitalization)
  Sender: FDA-Public Use
  Company Number: US-BAYER-200938166NA

PATIENT
  Age: 27 Year
  Sex: Female
  Weight: 74.83 kg

DRUGS (1)
  1. YAZ [Suspect]
     Indication: PRODUCT USED FOR UNKNOWN INDICATION
     Dates: start: 20070801, end: 20071001

REACTIONS (11)
  - PAIN IN EXTREMITY [None]
  - OEDEMA PERIPHERAL [None]
  - VOMITING [None]
  - ABDOMINAL DISCOMFORT [None]
  - PULMONARY EMBOLISM [None]
  - INJURY [None]
  - NAUSEA [None]
  - ANHEDONIA [None]
  - DEEP VEIN THROMBOSIS [None]
  - PAIN [None]
  - ANXIETY [None]
